FAERS Safety Report 8536870-5 (Version None)
Quarter: 2012Q3

REPORT INFORMATION
  Report Type: 
  Country: None (occurrence: None)
  Receive Date: 20120725
  Receipt Date: 20120719
  Transmission Date: 20120928
  Serious: Yes (Hospitalization)
  Sender: FDA-Public Use
  Company Number: IT-BAYER-2012-072467

PATIENT
  Age: 19 Year
  Sex: Female

DRUGS (1)
  1. YASMIN [Suspect]
     Dosage: DAILY DOSE 3.03 MG
     Route: 048
     Dates: start: 20120622, end: 20120624

REACTIONS (6)
  - NAUSEA [None]
  - VOMITING [None]
  - HEADACHE [None]
  - EATING DISORDER [None]
  - ASTHENIA [None]
  - PALLOR [None]
